FAERS Safety Report 8170022-6 (Version None)
Quarter: 2012Q1

REPORT INFORMATION
  Report Type: 
  Country: None (occurrence: None)
  Receive Date: 20120228
  Receipt Date: 20120217
  Transmission Date: 20120608
  Serious: Yes (Hospitalization)
  Sender: FDA-Public Use
  Company Number: DE-AMGEN-DEUSP2012011586

PATIENT
  Age: 57 Year
  Sex: Female

DRUGS (1)
  1. ENBREL [Suspect]
     Indication: RHEUMATOID ARTHRITIS
     Dosage: UNK
     Dates: start: 20120213, end: 20120217

REACTIONS (5)
  - CARDIAC DISORDER [None]
  - SKIN BURNING SENSATION [None]
  - RASH PUSTULAR [None]
  - DIARRHOEA [None]
  - NAUSEA [None]
